FAERS Safety Report 11965033 (Version 1)
Quarter: 2016Q1

REPORT INFORMATION
  Report Type: Spontaneous
  Country: US (occurrence: None)
  Receive Date: 20160122
  Receipt Date: 20160122
  Transmission Date: 20160526
  Serious: Yes (Disabling, Other)
  Sender: FDA-Public Use
  Company Number: None

PATIENT
  Age: 55 Year
  Sex: Female
  Weight: 41.28 kg

DRUGS (2)
  1. FORTEO [Suspect]
     Active Substance: TERIPARATIDE
     Indication: OSTEOPOROSIS
     Dosage: 20 MCG PER DOSE 600 MCG/2.4 ML 1 INJ DAILY ONCE DAILY FOR TWO YRS TOTAL STARTED FEB. 2014 SQ INJ
     Dates: start: 20140212, end: 20151108
  2. VITAMIN D3 [Concomitant]
     Active Substance: CHOLECALCIFEROL

REACTIONS (2)
  - Lymphoma [None]
  - Constipation [None]

NARRATIVE: CASE EVENT DATE: 20151216
